FAERS Safety Report 21384769 (Version 1)
Quarter: 2022Q3

REPORT INFORMATION
  Report Type: Spontaneous
  Country: US (occurrence: US)
  Receive Date: 20220928
  Receipt Date: 20220928
  Transmission Date: 20221027
  Serious: No
  Sender: FDA-Public Use
  Company Number: US-Melinta Therapeutics, LLC-US-MLNT-22-00003

PATIENT
  Sex: Female

DRUGS (2)
  1. ORBACTIV [Suspect]
     Active Substance: ORITAVANCIN
     Indication: Arthropod bite
     Dosage: NOT PROVIDED.
     Route: 042
     Dates: start: 20211121, end: 20211121
  2. CEPHALEXIN [Concomitant]
     Active Substance: CEPHALEXIN
     Indication: Arthropod bite
     Dosage: NOT PROVIDED.

REACTIONS (6)
  - Diarrhoea [Unknown]
  - Headache [Unknown]
  - Rash [Unknown]
  - Off label use [Unknown]
  - Incorrect product administration duration [Unknown]
  - Product administration error [Unknown]

NARRATIVE: CASE EVENT DATE: 20211121
